FAERS Safety Report 15428891 (Version 1)
Quarter: 2018Q3

REPORT INFORMATION
  Report Type: Spontaneous
  Country: BR (occurrence: BR)
  Receive Date: 20180926
  Receipt Date: 20180926
  Transmission Date: 20181010
  Serious: Yes (Other)
  Sender: FDA-Public Use
  Company Number: BR-ALKEM LABORATORIES LIMITED-BR-ALKEM-2018-07813

PATIENT
  Age: 6 Year
  Sex: Female

DRUGS (4)
  1. NITRAZEPAM [Concomitant]
     Active Substance: NITRAZEPAM
     Indication: EPILEPSY
     Dosage: 10 MG, QD
     Route: 065
  2. LAMOTRIGINE. [Suspect]
     Active Substance: LAMOTRIGINE
     Indication: EPILEPSY
     Dosage: 200 MG, QD
     Route: 065
  3. VALPROATE [Concomitant]
     Active Substance: VALPROIC ACID
     Indication: EPILEPSY
     Dosage: 90 MG, QD
     Route: 065
  4. LAMOTRIGINE. [Suspect]
     Active Substance: LAMOTRIGINE
     Dosage: 150 MG, QD
     Route: 065

REACTIONS (5)
  - Vomiting [Recovered/Resolved]
  - Headache [Recovered/Resolved]
  - Ataxia [Recovered/Resolved]
  - Opsoclonus myoclonus [Recovered/Resolved]
  - Vertigo [Recovered/Resolved]
